FAERS Safety Report 12540513 (Version 3)
Quarter: 2016Q4

REPORT INFORMATION
  Report Type: Spontaneous
  Country: US (occurrence: US)
  Receive Date: 20160708
  Receipt Date: 20161019
  Transmission Date: 20170207
  Serious: Yes (Other)
  Sender: FDA-Public Use
  Company Number: US-TEVA-635745USA

PATIENT
  Sex: Female

DRUGS (7)
  1. PREMPRO [Concomitant]
     Active Substance: ESTROGENS, CONJUGATED\MEDROXYPROGESTERONE ACETATE
     Dosage: 0.3/1.5 MG
  2. ZECUITY [Suspect]
     Active Substance: SUMATRIPTAN SUCCINATE
     Indication: MIGRAINE
     Route: 062
  3. PRAVASTATIN. [Concomitant]
     Active Substance: PRAVASTATIN
  4. LEVOTHYROXINE. [Concomitant]
     Active Substance: LEVOTHYROXINE
  5. SEPTRA [Concomitant]
     Active Substance: SULFAMETHOXAZOLE\TRIMETHOPRIM
  6. BUTAL/APAP/CAFFEINE [Concomitant]
     Dosage: UNKNOWN DOSAGE
  7. RIZATRIPTAN. [Concomitant]
     Active Substance: RIZATRIPTAN

REACTIONS (9)
  - Device leakage [Recovered/Resolved]
  - Application site irritation [Recovered/Resolved]
  - Application site burn [Recovered/Resolved]
  - Application site discolouration [Recovered/Resolved]
  - Application site vesicles [Recovered/Resolved]
  - Application site inflammation [Recovered/Resolved]
  - Application site swelling [Recovered/Resolved]
  - Application site erythema [Recovered/Resolved]
  - Product adhesion issue [Unknown]
